FAERS Safety Report 4929147-8 (Version None)
Quarter: 2006Q1

REPORT INFORMATION
  Report Type: 
  Country: None (occurrence: None)
  Receive Date: 20060301
  Receipt Date: 20050930
  Transmission Date: 20060701
  Serious: Yes (Hospitalization, Disabling, Other)
  Sender: FDA-Public Use
  Company Number: US-MERCK-0510USA00955

PATIENT
  Age: 56 Year
  Sex: Male
  Weight: 99 kg

DRUGS (2)
  1. VIOXX [Suspect]
     Indication: ROTATOR CUFF SYNDROME
     Route: 048
     Dates: start: 20040812, end: 20041014
  2. ADVIL [Concomitant]
     Route: 065

REACTIONS (12)
  - ARRHYTHMIA [None]
  - ASTHMA [None]
  - CEREBROVASCULAR ACCIDENT [None]
  - CHEST PAIN [None]
  - CORONARY ARTERY DISEASE [None]
  - DYSPNOEA [None]
  - HEADACHE [None]
  - HILAR LYMPHADENOPATHY [None]
  - HYPERLIPIDAEMIA [None]
  - HYPERTENSION [None]
  - ORGAN FAILURE [None]
  - PERICARDITIS [None]
